FAERS Safety Report 5030803-4 (Version None)
Quarter: 2006Q2

REPORT INFORMATION
  Report Type: 
  Country: None (occurrence: None)
  Receive Date: 20060614
  Receipt Date: 20060601
  Transmission Date: 20061013
  Serious: Yes (Hospitalization, Other)
  Sender: FDA-Public Use
  Company Number: HQWYE022508JUN06

PATIENT
  Sex: Male

DRUGS (2)
  1. EFFEXOR XR [Suspect]
     Indication: MAJOR DEPRESSION
     Dosage: SEE IMAGE
     Route: 064
     Dates: start: 20020701, end: 20030601
  2. EFFEXOR XR [Suspect]
     Indication: MAJOR DEPRESSION
     Dosage: SEE IMAGE
     Route: 064
     Dates: end: 20040119

REACTIONS (4)
  - CAESAREAN SECTION [None]
  - DRUG EXPOSURE DURING PREGNANCY [None]
  - OLIGOHYDRAMNIOS [None]
  - PREMATURE BABY [None]
